FAERS Safety Report 9108137 (Version 1)
Quarter: 2013Q1

REPORT INFORMATION
  Report Type: Spontaneous
  Country: US (occurrence: US)
  Receive Date: 20130221
  Receipt Date: 20130221
  Transmission Date: 20140127
  Serious: No
  Sender: FDA-Public Use
  Company Number: US-BIOGENIDEC-2013BI015787

PATIENT
  Age: 50 Year
  Sex: Female

DRUGS (6)
  1. TYSABRI [Suspect]
     Indication: MULTIPLE SCLEROSIS
     Route: 042
     Dates: start: 20070823
  2. PROZAC [Concomitant]
     Indication: POST-TRAUMATIC STRESS DISORDER
  3. PRISTIQ [Concomitant]
     Indication: POST-TRAUMATIC STRESS DISORDER
  4. PERCOCET 10/325 MG [Concomitant]
     Indication: BACK PAIN
     Route: 048
  5. TORADOL INJECTION [Concomitant]
     Indication: BACK PAIN
  6. FLEXERIL 4 TIMES DAILY AS NEEDED [Concomitant]
     Indication: BACK PAIN
     Route: 048

REACTIONS (4)
  - Bursa injury [Not Recovered/Not Resolved]
  - Meniscus injury [Not Recovered/Not Resolved]
  - Fall [Recovered/Resolved]
  - Fatigue [Recovered/Resolved]
